FAERS Safety Report 19255833 (Version 1)
Quarter: 2021Q2

REPORT INFORMATION
  Report Type: Spontaneous
  Country: US (occurrence: US)
  Receive Date: 20210514
  Receipt Date: 20210514
  Transmission Date: 20210717
  Serious: Yes (Other)
  Sender: FDA-Public Use
  Company Number: US-ORGANON-O2105USA000304

PATIENT
  Age: 37 Year
  Sex: Female

DRUGS (4)
  1. SINGULAIR [Suspect]
     Active Substance: MONTELUKAST SODIUM
     Indication: ASTHMA
     Dosage: UNK
     Route: 048
     Dates: start: 2019, end: 202101
  2. SINGULAIR [Suspect]
     Active Substance: MONTELUKAST SODIUM
     Dosage: 10 MILLIGRAM (MG) TABLET, 1/2 TABLET DAILY IN THE MORNING
     Route: 048
     Dates: start: 2021, end: 2021
  3. BENADRYL [Concomitant]
     Active Substance: DIPHENHYDRAMINE HYDROCHLORIDE
     Dosage: UNK
  4. ZYRTEC [Concomitant]
     Active Substance: CETIRIZINE HYDROCHLORIDE
     Dosage: UNK

REACTIONS (5)
  - Tourette^s disorder [Recovered/Resolved]
  - Tremor [Recovered/Resolved]
  - Product use issue [Unknown]
  - Dyskinesia [Recovered/Resolved]
  - Tremor [Not Recovered/Not Resolved]

NARRATIVE: CASE EVENT DATE: 202009
